FAERS Safety Report 9968935 (Version 1)
Quarter: 2014Q1

REPORT INFORMATION
  Report Type: Report from Study
  Country: US (occurrence: US)
  Receive Date: 20140306
  Receipt Date: 20140306
  Transmission Date: 20141002
  Serious: No
  Sender: FDA-Public Use
  Company Number: US-ABBVIE-13P-163-1145111-00

PATIENT
  Sex: Female

DRUGS (4)
  1. HUMIRA [Suspect]
     Indication: CROHN^S DISEASE
     Dates: start: 20130715
  2. BIRTH CONTROL PILL [Concomitant]
     Indication: CONTRACEPTION
  3. PREDNISONE [Concomitant]
     Indication: CROHN^S DISEASE
     Dosage: 10 MG DAILY, TAPERING DOSE
  4. OMEPRAZOLE [Concomitant]
     Indication: DYSPEPSIA
     Dosage: 20 OR 25 MG DAILY

REACTIONS (1)
  - Rash [Recovered/Resolved]
